FAERS Safety Report 4761196-5 (Version None)
Quarter: 2005Q3

REPORT INFORMATION
  Report Type: 
  Country: None (occurrence: None)
  Receive Date: 20050901
  Receipt Date: 20050524
  Transmission Date: 20060218
  Serious: No
  Sender: FDA-Public Use
  Company Number: 2005FR-00234

PATIENT
  Age: 60 Year
  Sex: Female

DRUGS (1)
  1. BENYLIN [Suspect]
     Indication: COUGH

REACTIONS (1)
  - ANAPHYLACTIC REACTION [None]
